FAERS Safety Report 16570204 (Version 2)
Quarter: 2019Q3

REPORT INFORMATION
  Report Type: Other
  Country: SG (occurrence: SG)
  Receive Date: 20190715
  Receipt Date: 20190802
  Transmission Date: 20191004
  Serious: Yes (Life-Threatening, Hospitalization, Other)
  Sender: FDA-Public Use
  Company Number: SG-VISTAPHARM, INC.-VER201907-000595

PATIENT
  Age: 2 Year
  Sex: Female

DRUGS (1)
  1. METHADONE [Suspect]
     Active Substance: METHADONE HYDROCHLORIDE
     Dosage: UNKNOWN
     Route: 048

REACTIONS (2)
  - Accidental exposure to product [Recovered/Resolved]
  - Toxic encephalopathy [Recovered/Resolved]
